FAERS Safety Report 9168743 (Version 1)
Quarter: 2013Q1

REPORT INFORMATION
  Report Type: Spontaneous
  Country: GB (occurrence: None)
  Receive Date: 20130307
  Receipt Date: 20130307
  Transmission Date: 20140127
  Serious: Yes (Life-Threatening, Hospitalization, Disabling, Other)
  Sender: FDA-Public Use
  Company Number: 2013P1002778

PATIENT
  Age: 57 Year
  Sex: Female

DRUGS (12)
  1. FLUCONAZOLE [Suspect]
     Dates: start: 20130117
  2. AMLODIPINE [Concomitant]
  3. OMEPRAZOLE [Concomitant]
  4. PREDNISOLONE SODIUM PHOSPHATE [Concomitant]
  5. NAPROXEN [Concomitant]
  6. ALGINATES [Concomitant]
  7. MICONAZOLE [Concomitant]
  8. CO-DYDRAMOL/DIHYDROCODEINE TARTRATE [Concomitant]
  9. ATENOLOL [Concomitant]
  10. MEBEVERINE HYDROCHLORIDE [Concomitant]
  11. FLUCLOXACILLIN [Concomitant]
  12. CO-AMOXICLAV/AMOXYCILLIN [Concomitant]

REACTIONS (2)
  - Encephalitis [None]
  - Meningitis [None]
